FAERS Safety Report 8443161-X (Version None)
Quarter: 2012Q2

REPORT INFORMATION
  Report Type: 
  Country: None (occurrence: None)
  Receive Date: 20120615
  Receipt Date: 20120607
  Transmission Date: 20120825
  Serious: Yes (Other)
  Sender: FDA-Public Use
  Company Number: US-RB-041312-12

PATIENT
  Age: 54 Year
  Sex: Male

DRUGS (1)
  1. SUBOXONE [Suspect]
     Indication: PRODUCT USED FOR UNKNOWN INDICATION
     Dosage: UNKNOWN DOSAGE DETAILS
     Route: 065

REACTIONS (8)
  - ALCOHOL ABUSE [None]
  - POOR QUALITY SLEEP [None]
  - SUBSTANCE ABUSE [None]
  - HEPATITIS C [None]
  - WRONG TECHNIQUE IN DRUG USAGE PROCESS [None]
  - DIARRHOEA [None]
  - HEPATIC CIRRHOSIS [None]
  - VOMITING [None]
